FAERS Safety Report 9358882 (Version 1)
Quarter: 2013Q2

REPORT INFORMATION
  Report Type: Report from Study
  Country: DE (occurrence: DE)
  Receive Date: 20130620
  Receipt Date: 20130620
  Transmission Date: 20140414
  Serious: Yes (Hospitalization)
  Sender: FDA-Public Use
  Company Number: DE-TEVA-412501ISR

PATIENT
  Age: 52 Year
  Sex: Female

DRUGS (4)
  1. PACLITAXEL [Suspect]
     Indication: OVARIAN CANCER
     Dosage: 175 MG/M2 DAILY; LAST DOSE ADMINISTERED ON 16-MAY-2013
     Route: 042
     Dates: start: 20130314
  2. CARBOPLATIN [Suspect]
     Indication: OVARIAN CANCER
     Dosage: 555 MILLIGRAM DAILY; LAST DOSE ADMINISTERED ON 16-MAY-2013 AT THE DOSE OF AUC 5
     Route: 042
     Dates: start: 20130314
  3. BEVACIZUMAB [Suspect]
     Indication: OVARIAN CANCER
     Dosage: 15 MG/KG DAILY; LAST DOSE ADMINISTERED ON 16-MAY-2013
     Route: 042
     Dates: start: 20130314
  4. CLEXANE [Concomitant]
     Indication: PROPHYLAXIS
     Dosage: 0.4 UNIT NOT REPORTED.
     Route: 048
     Dates: start: 201301

REACTIONS (2)
  - Embolism [Not Recovered/Not Resolved]
  - Lymphocele [Unknown]
